FAERS Safety Report 16489482 (Version 2)
Quarter: 2019Q3

REPORT INFORMATION
  Report Type: Spontaneous
  Country: CA (occurrence: CA)
  Receive Date: 20190628
  Receipt Date: 20190808
  Transmission Date: 20191004
  Serious: Yes (Other)
  Sender: FDA-Public Use
  Company Number: CA-ORION CORPORATION ORION PHARMA-TREX2019-2016

PATIENT
  Age: 37 Year
  Sex: Female

DRUGS (3)
  1. METHOTREXATE (TRADE NAME UNKNOWN) [Suspect]
     Active Substance: METHOTREXATE
     Indication: PRODUCT USED FOR UNKNOWN INDICATION
     Route: 065
     Dates: start: 20180601, end: 20181115
  2. ARAVA [Concomitant]
     Active Substance: LEFLUNOMIDE
     Route: 065
     Dates: start: 20180831
  3. PREDNISONE. [Concomitant]
     Active Substance: PREDNISONE
     Indication: ARTHRITIS
     Route: 065

REACTIONS (8)
  - Joint swelling [Unknown]
  - Drug ineffective [Unknown]
  - Sensitivity to weather change [Unknown]
  - Mood altered [Unknown]
  - Hepatitis B [Unknown]
  - Cartilage injury [Not Recovered/Not Resolved]
  - Arthralgia [Unknown]
  - Drug intolerance [Unknown]
